FAERS Safety Report 7548757-5 (Version None)
Quarter: 2011Q2

REPORT INFORMATION
  Report Type: 
  Country: None (occurrence: None)
  Receive Date: 20110615
  Receipt Date: 20110531
  Transmission Date: 20111010
  Serious: Yes (Hospitalization, Other)
  Sender: FDA-Public Use
  Company Number: US-ELI_LILLY_AND_COMPANY-US201101003156

PATIENT
  Sex: Male
  Weight: 84.4 kg

DRUGS (1)
  1. SYMBYAX [Suspect]
     Dosage: 6/25 MG, UNKNOWN
     Route: 048
     Dates: start: 20090601

REACTIONS (1)
  - ATRIAL FIBRILLATION [None]
